FAERS Safety Report 9268810 (Version 1)
Quarter: 2013Q2

REPORT INFORMATION
  Report Type: Spontaneous
  Country: US (occurrence: US)
  Receive Date: 20130502
  Receipt Date: 20130502
  Transmission Date: 20140414
  Serious: No
  Sender: FDA-Public Use
  Company Number: US-ASTRAZENECA-2013SE24040

PATIENT
  Age: 67 Year
  Sex: Male

DRUGS (2)
  1. CRESTOR [Suspect]
     Route: 048
  2. METFORMIN [Concomitant]

REACTIONS (3)
  - Hypoaesthesia [Unknown]
  - Chromaturia [Unknown]
  - Paraesthesia [Unknown]
